FAERS Safety Report 4727239-X (Version None)
Quarter: 2005Q3

REPORT INFORMATION
  Report Type: 
  Country: None (occurrence: None)
  Receive Date: 20050726
  Receipt Date: 20040204
  Transmission Date: 20060218
  Serious: Yes (Death)
  Sender: FDA-Public Use
  Company Number: 04SFA0025 71

PATIENT
  Age: 61 Year
  Sex: Male

DRUGS (1)
  1. AGGRASTAT [Suspect]
     Dosage: INJECTION
     Dates: start: 20040201

REACTIONS (1)
  - DEATH [None]
